FAERS Safety Report 6816903-4 (Version None)
Quarter: 2010Q2

REPORT INFORMATION
  Report Type: 
  Country: None (occurrence: None)
  Receive Date: 20100630
  Receipt Date: 20100616
  Transmission Date: 20101027
  Serious: Yes (Hospitalization)
  Sender: FDA-Public Use
  Company Number: 1000014751

PATIENT
  Age: 47 Year
  Sex: Female

DRUGS (2)
  1. ESCITALOPRAM OXALATE [Suspect]
     Indication: DEPRESSION
     Dosage: 20 MG (20 MG, 1 IN  1 D),ORAL
     Route: 048
     Dates: start: 20091112, end: 20100315
  2. LEXOMIL [Concomitant]

REACTIONS (3)
  - INSOMNIA [None]
  - MANIA [None]
  - MOOD ALTERED [None]
